FAERS Safety Report 7258047-6 (Version None)
Quarter: 2011Q1

REPORT INFORMATION
  Report Type: 
  Country: None (occurrence: None)
  Receive Date: 20110129
  Receipt Date: 20100709
  Transmission Date: 20110831
  Serious: Yes (Other)
  Sender: FDA-Public Use
  Company Number: US-ABBOTT-10P-163-0651698-00

PATIENT
  Sex: Female
  Weight: 79.45 kg

DRUGS (7)
  1. CLORAZEPATE DIPOTASSIUM [Concomitant]
     Indication: DEPRESSION
     Route: 048
  2. FLEXERIL [Concomitant]
     Indication: PSORIATIC ARTHROPATHY
  3. HUMIRA [Suspect]
     Indication: PSORIATIC ARTHROPATHY
     Route: 058
     Dates: start: 20080101
  4. PERCOCET [Concomitant]
     Indication: OSTEOARTHRITIS
  5. LISINOPRIL [Concomitant]
     Indication: PRODUCT USED FOR UNKNOWN INDICATION
     Route: 048
  6. CELEXA [Concomitant]
     Indication: DEPRESSION
     Route: 048
  7. MORPHINE SULFATE [Concomitant]
     Indication: PRODUCT USED FOR UNKNOWN INDICATION
     Route: 048

REACTIONS (4)
  - HIP FRACTURE [None]
  - VOMITING [None]
  - NAUSEA [None]
  - FALL [None]
